FAERS Safety Report 4683615-5 (Version None)
Quarter: 2005Q2

REPORT INFORMATION
  Report Type: 
  Country: None (occurrence: None)
  Receive Date: 20050602
  Receipt Date: 20050307
  Transmission Date: 20051028
  Serious: No
  Sender: FDA-Public Use
  Company Number: 200420665BWH

PATIENT
  Age: 52 Year
  Sex: Male
  Weight: 117.9352 kg

DRUGS (9)
  1. LEVITRA [Suspect]
     Indication: ERECTILE DYSFUNCTION
     Dosage: 20 MG, PRN, ORAL
     Route: 048
  2. VIAGRA [Concomitant]
  3. CIALIS [Concomitant]
  4. GLUCOPHAGE [Concomitant]
  5. GLUCOTROL [Concomitant]
  6. HYDROCHLOROTHIAZIDE [Concomitant]
  7. PLENDIL [Concomitant]
  8. MEVACOR [Concomitant]
  9. MULTI-VITAMIN [Concomitant]

REACTIONS (1)
  - ERECTILE DYSFUNCTION [None]
